FAERS Safety Report 25024156 (Version 1)
Quarter: 2025Q1

REPORT INFORMATION
  Report Type: Spontaneous
  Country: US (occurrence: None)
  Receive Date: 20250228
  Receipt Date: 20250228
  Transmission Date: 20250409
  Serious: Yes (Hospitalization)
  Sender: FDA-CTU
  Company Number: None

PATIENT
  Age: 74 Year
  Sex: Male

DRUGS (1)
  1. PROPRANOLOL HYDROCHLORIDE [Suspect]
     Active Substance: PROPRANOLOL HYDROCHLORIDE
     Indication: Anxiety

REACTIONS (7)
  - Pain [None]
  - Nausea [None]
  - Dizziness [None]
  - Confusional state [None]
  - Overdose [None]
  - Influenza A virus test positive [None]
  - Pulmonary embolism [None]

NARRATIVE: CASE EVENT DATE: 20250207
